FAERS Safety Report 12610888 (Version 2)
Quarter: 2016Q3

REPORT INFORMATION
  Report Type: Spontaneous
  Country: US (occurrence: US)
  Receive Date: 20160801
  Receipt Date: 20160902
  Transmission Date: 20161109
  Serious: No
  Sender: FDA-Public Use
  Company Number: US-PFIZER INC-2016337910

PATIENT
  Age: 55 Year
  Sex: Female

DRUGS (2)
  1. HYDROCORTISONE. [Suspect]
     Active Substance: HYDROCORTISONE
     Dosage: 30 MG, DAILY (20MG-MORNING, 10MG- AFTERNOON)
     Route: 048
  2. HYDROCORTISONE. [Suspect]
     Active Substance: HYDROCORTISONE
     Indication: BLOOD CORTISOL ABNORMAL
     Dosage: 10 MG, UNK
     Route: 048

REACTIONS (4)
  - Hypersomnia [Recovering/Resolving]
  - Wheezing [Unknown]
  - Chest discomfort [Unknown]
  - Fatigue [Recovering/Resolving]
